FAERS Safety Report 19202630 (Version 1)
Quarter: 2021Q2

REPORT INFORMATION
  Report Type: Spontaneous
  Country: US (occurrence: US)
  Receive Date: 20210430
  Receipt Date: 20210430
  Transmission Date: 20210717
  Serious: No
  Sender: FDA-Public Use
  Company Number: US-JNJFOC-20210456719

PATIENT

DRUGS (1)
  1. HALDOL DECANOATE [Suspect]
     Active Substance: HALOPERIDOL DECANOATE
     Indication: PRODUCT USED FOR UNKNOWN INDICATION
     Route: 030

REACTIONS (6)
  - Muscle spasms [Unknown]
  - Drug intolerance [Unknown]
  - Product use issue [Unknown]
  - Product administered at inappropriate site [Unknown]
  - Overdose [Unknown]
  - Off label use [Unknown]
